FAERS Safety Report 11325751 (Version 2)
Quarter: 2015Q3

REPORT INFORMATION
  Report Type: Spontaneous
  Country: US (occurrence: US)
  Receive Date: 20150731
  Receipt Date: 20150921
  Transmission Date: 20151125
  Serious: Yes (Hospitalization)
  Sender: FDA-Public Use
  Company Number: US-ROCHE-1614112

PATIENT
  Age: 34 Year
  Sex: Male
  Weight: 86 kg

DRUGS (5)
  1. XOLAIR [Suspect]
     Active Substance: OMALIZUMAB
     Indication: ASTHMA
     Dosage: ON THERAPY FOR 5 MONTHS
     Route: 058
     Dates: start: 20150115, end: 20150528
  2. SINGULAIR [Concomitant]
     Active Substance: MONTELUKAST SODIUM
  3. SINGULAIR [Suspect]
     Active Substance: MONTELUKAST SODIUM
     Indication: ASTHMA
     Dosage: PM
     Route: 048
  4. PROVENTIL [Concomitant]
     Active Substance: ALBUTEROL
     Indication: ASTHMA
     Route: 065
  5. ADVAIR HFA [Concomitant]
     Active Substance: FLUTICASONE PROPIONATE\SALMETEROL XINAFOATE
     Route: 065

REACTIONS (9)
  - Pyrexia [Recovering/Resolving]
  - Proteinuria [Recovering/Resolving]
  - Lower gastrointestinal haemorrhage [Recovering/Resolving]
  - Haematuria [Recovering/Resolving]
  - Petechiae [Recovering/Resolving]
  - Lung infiltration [Recovering/Resolving]
  - Langerhans^ cell histiocytosis [Recovering/Resolving]
  - Abdominal pain [Recovering/Resolving]
  - Eosinophilia [Recovering/Resolving]

NARRATIVE: CASE EVENT DATE: 20150716
